FAERS Safety Report 9162576 (Version 2)
Quarter: 2013Q2

REPORT INFORMATION
  Report Type: Spontaneous
  Country: JP (occurrence: JP)
  Receive Date: 20130314
  Receipt Date: 20130530
  Transmission Date: 20140414
  Serious: Yes (Life-Threatening, Other)
  Sender: FDA-Public Use
  Company Number: JP-PFIZER INC-2013084425

PATIENT
  Age: 52 Year
  Sex: Male

DRUGS (5)
  1. IRINOTECAN HCL [Suspect]
     Indication: COLON CANCER
     Dosage: 200 MG, 1X/DAY
     Route: 041
     Dates: start: 20130109, end: 20130208
  2. 5-FU [Suspect]
     Indication: COLON CANCER
     Dosage: 650 MG, 1X/DAY
     Route: 040
     Dates: start: 20130109, end: 20130208
  3. 5-FU [Suspect]
     Dosage: 4000 MG, ONCE IN 2 DAYS
     Route: 041
     Dates: start: 20130109, end: 20130208
  4. AVASTIN [Suspect]
     Indication: COLON CANCER
     Dosage: 300 MG, 1X/DAY
     Route: 041
     Dates: start: 20130109, end: 20130208
  5. CALCIUM LEVOFOLINATE [Concomitant]
     Dosage: UNK
     Dates: start: 20130109, end: 20130208

REACTIONS (1)
  - Interstitial lung disease [Not Recovered/Not Resolved]
